FAERS Safety Report 5936068-0 (Version None)
Quarter: 2008Q4

REPORT INFORMATION
  Report Type: 
  Country: None (occurrence: None)
  Receive Date: 20081030
  Receipt Date: 20081022
  Transmission Date: 20090506
  Serious: Yes (Disabling)
  Sender: FDA-Public Use
  Company Number: DE-PFIZER INC-2008073536

PATIENT
  Sex: Female

DRUGS (8)
  1. NORVASC [Suspect]
     Indication: HYPERTENSION
     Route: 048
     Dates: start: 20040729, end: 20040802
  2. NORVASC [Suspect]
     Route: 048
     Dates: start: 20040803, end: 20040801
  3. CAPTOHEXAL [Concomitant]
     Route: 048
  4. BISOPROLOL FUMARATE [Concomitant]
     Route: 048
  5. GYNOKADIN TABLET [Concomitant]
  6. GESTAKADIN [Concomitant]
     Route: 048
  7. ACETYLSALICYLIC ACID SRT [Concomitant]
     Route: 048
  8. COVERSUM COMBI [Concomitant]
     Route: 048

REACTIONS (1)
  - TREMOR [None]
